FAERS Safety Report 6275728-1 (Version None)
Quarter: 2009Q3

REPORT INFORMATION
  Report Type: 
  Country: None (occurrence: None)
  Receive Date: 20090721
  Receipt Date: 20090710
  Transmission Date: 20100115
  Serious: Yes (Hospitalization, Other)
  Sender: FDA-Public Use
  Company Number: PHHY2009JP18294

PATIENT
  Sex: Male

DRUGS (10)
  1. FAMVIR [Suspect]
     Indication: HERPES ZOSTER
     Dosage: 500 MG, TID
     Route: 048
     Dates: start: 20090415, end: 20090417
  2. BACITRACIN_FRADIOMYCIN SULFATE [Concomitant]
     Dosage: UNK
     Dates: start: 20090417, end: 20090427
  3. AZULENE [Concomitant]
     Dosage: UNK
     Dates: start: 20090417, end: 20090427
  4. CLOTIAZEPAM [Concomitant]
     Dosage: UNK
     Dates: start: 20081001, end: 20090417
  5. FLUVOXAMINE MALEATE [Concomitant]
     Dosage: UNK
     Dates: start: 20081001, end: 20090417
  6. BIPERIDEN HYDROCHLORIDE [Concomitant]
     Dosage: UNK
     Dates: start: 20081001, end: 20090417
  7. ETIZOLAM [Concomitant]
     Dosage: UNK
     Dates: start: 20081001, end: 20090417
  8. PEROSPIRONE HYDROCHLORIDE [Concomitant]
     Dosage: UNK
     Dates: start: 20081001, end: 20090417
  9. ZOPICLONE [Concomitant]
     Dosage: UNK
     Dates: start: 20081001, end: 20090417
  10. SENNOSIDE [Concomitant]
     Dosage: UNK
     Dates: start: 20081001, end: 20090417

REACTIONS (5)
  - CONDITION AGGRAVATED [None]
  - DRUG INEFFECTIVE [None]
  - MUSCULAR WEAKNESS [None]
  - RHABDOMYOLYSIS [None]
  - TREMOR [None]
